FAERS Safety Report 15328140 (Version 2)
Quarter: 2020Q1

REPORT INFORMATION
  Report Type: Report from Study
  Country: JP (occurrence: JP)
  Receive Date: 20180828
  Receipt Date: 20200127
  Transmission Date: 20200409
  Serious: Yes (Hospitalization, Other)
  Sender: FDA-Public Use
  Company Number: JP-AMGEN-JPNCT2018117117

PATIENT
  Age: 86 Year
  Sex: Female

DRUGS (13)
  1. FUROSEMIDE. [Concomitant]
     Active Substance: FUROSEMIDE
     Dosage: UNK
     Route: 048
     Dates: end: 20190730
  2. FAMOTIDINE. [Concomitant]
     Active Substance: FAMOTIDINE
     Dosage: UNK
     Route: 042
     Dates: end: 20180823
  3. ZACRAS [Concomitant]
     Active Substance: AMLODIPINE BESYLATE\AZILSARTAN
     Indication: HYPERTENSION
     Dosage: UNK
     Route: 048
  4. PRIMOBOLAN [Concomitant]
     Active Substance: METHENOLONE
     Indication: MYELODYSPLASTIC SYNDROME
     Dosage: 5 MILLIGRAM
     Route: 048
     Dates: start: 20180828
  5. ALDACTONE A [Concomitant]
     Active Substance: SPIRONOLACTONE
     Dosage: UNK
     Route: 048
     Dates: end: 20190521
  6. CLOPIDOGREL [Concomitant]
     Active Substance: CLOPIDOGREL BISULFATE
     Indication: CAROTID ARTERY STENOSIS
     Dosage: UNK
     Route: 048
  7. DARBEPOETIN ALFA [Suspect]
     Active Substance: DARBEPOETIN ALFA
     Indication: MYELODYSPLASTIC SYNDROME
     Dosage: 240 MICROGRAM, QWK
     Route: 058
     Dates: start: 20180703, end: 20180731
  8. TAKECAB [Concomitant]
     Active Substance: VONOPRAZAN FUMURATE
     Dosage: UNK
     Route: 048
  9. CLARITHROMYCIN. [Concomitant]
     Active Substance: CLARITHROMYCIN
     Dosage: UNK
     Route: 048
     Dates: end: 20190725
  10. DARBEPOETIN ALFA [Suspect]
     Active Substance: DARBEPOETIN ALFA
     Dosage: 240 MICROGRAM
     Route: 058
     Dates: start: 20180813, end: 20180813
  11. EPADEL [Concomitant]
     Active Substance: ICOSAPENT
     Indication: CAROTID ARTERY STENOSIS
     Dosage: UNK
     Route: 048
  12. BISOPROLOL FUMARATE. [Concomitant]
     Active Substance: BISOPROLOL FUMARATE
     Indication: HYPERTENSION
     Dosage: UNK
     Route: 048
  13. GOREISAN [Concomitant]
     Active Substance: HERBALS
     Dosage: UNK
     Route: 048
     Dates: end: 20180925

REACTIONS (4)
  - Loss of consciousness [Unknown]
  - Chronic sinusitis [Recovering/Resolving]
  - Subdural haematoma [Recovering/Resolving]
  - Oedema peripheral [Recovering/Resolving]

NARRATIVE: CASE EVENT DATE: 20180820
